FAERS Safety Report 5130468-7 (Version None)
Quarter: 2006Q4

REPORT INFORMATION
  Report Type: 
  Country: None (occurrence: None)
  Receive Date: 20061018
  Receipt Date: 20061018
  Transmission Date: 20070319
  Serious: Yes (Other)
  Sender: FDA-Public Use
  Company Number: None

PATIENT
  Age: 32 Year
  Sex: Female
  Weight: 77.1115 kg

DRUGS (1)
  1. LEVAQUIN [Suspect]
     Indication: SINUSITIS
     Dosage: 750 MF QD PO
     Route: 048
     Dates: start: 20060927, end: 20061016

REACTIONS (3)
  - ARTHRALGIA [None]
  - MYALGIA [None]
  - TENDON DISORDER [None]
